FAERS Safety Report 20152707 (Version 3)
Quarter: 2022Q2

REPORT INFORMATION
  Report Type: Report from Study
  Country: ES (occurrence: ES)
  Receive Date: 20211206
  Receipt Date: 20220601
  Transmission Date: 20220721
  Serious: Yes (Other)
  Sender: FDA-Public Use
  Company Number: ES-GILEAD-2021-0559517

PATIENT
  Age: 33 Year
  Sex: Female

DRUGS (27)
  1. AXICABTAGENE CILOLEUCEL [Suspect]
     Active Substance: AXICABTAGENE CILOLEUCEL
     Indication: B-cell lymphoma
     Dosage: UNK
     Route: 042
     Dates: start: 20200414, end: 20200414
  2. TACROLIMUS [Suspect]
     Active Substance: TACROLIMUS
     Indication: Graft versus host disease
     Dosage: UNK
     Route: 065
  3. PREDNISONE [Concomitant]
     Active Substance: PREDNISONE
     Dosage: 1 MG/KG
     Dates: start: 202001
  4. PREDNISONE [Concomitant]
     Active Substance: PREDNISONE
     Dosage: 1 MG/KG AS TREATMENT FOR DIARRHEA SYNDROME
     Dates: start: 20200912
  5. PREDNISONE [Concomitant]
     Active Substance: PREDNISONE
     Dosage: HSC DAY 120 REDUCED/DISCONTINUED DAY 150
     Dates: end: 20210406
  6. PEMBROLIZUMAB [Concomitant]
     Active Substance: PEMBROLIZUMAB
     Indication: B-cell lymphoma
     Dosage: X 3 CYCS
     Dates: start: 202003
  7. PEMBROLIZUMAB [Concomitant]
     Active Substance: PEMBROLIZUMAB
     Indication: Progressive multifocal leukoencephalopathy
  8. ETOPOSIDE [Concomitant]
     Active Substance: ETOPOSIDE
     Indication: B-cell lymphoma
     Dosage: DOSE ADJUSTED
     Dates: start: 202003
  9. ETOPOSIDE [Concomitant]
     Active Substance: ETOPOSIDE
     Indication: Progressive multifocal leukoencephalopathy
  10. PREDNISOLONE [Concomitant]
     Active Substance: PREDNISOLONE
     Indication: B-cell lymphoma
     Dosage: DOSE ADJUSTED
     Dates: start: 202003
  11. PREDNISOLONE [Concomitant]
     Active Substance: PREDNISOLONE
     Indication: Progressive multifocal leukoencephalopathy
  12. VINCRISTINE [Concomitant]
     Active Substance: VINCRISTINE
     Indication: B-cell lymphoma
     Dosage: DOSE ADJUSTED
     Dates: start: 202003
  13. VINCRISTINE [Concomitant]
     Active Substance: VINCRISTINE
     Indication: Progressive multifocal leukoencephalopathy
  14. CYCLOPHOSPHAMIDE [Concomitant]
     Active Substance: CYCLOPHOSPHAMIDE
     Indication: B-cell lymphoma
     Dosage: DOSE ADJUSTED
     Dates: start: 202003
  15. CYCLOPHOSPHAMIDE [Concomitant]
     Active Substance: CYCLOPHOSPHAMIDE
     Indication: Progressive multifocal leukoencephalopathy
     Dosage: UNK
     Dates: start: 202004
  16. CYCLOPHOSPHAMIDE [Concomitant]
     Active Substance: CYCLOPHOSPHAMIDE
     Indication: Bone marrow conditioning regimen
  17. DOXORUBICIN [Concomitant]
     Active Substance: DOXORUBICIN
     Indication: B-cell lymphoma
     Dosage: DOSE ADJUSTED
     Dates: start: 202003
  18. DOXORUBICIN [Concomitant]
     Active Substance: DOXORUBICIN
     Indication: Progressive multifocal leukoencephalopathy
  19. RITUXIMAB [Concomitant]
     Active Substance: RITUXIMAB
     Indication: B-cell lymphoma
     Dosage: UNK
     Dates: start: 202003
  20. RITUXIMAB [Concomitant]
     Active Substance: RITUXIMAB
     Indication: Progressive multifocal leukoencephalopathy
  21. FLUDARABINE [Concomitant]
     Active Substance: FLUDARABINE PHOSPHATE
     Indication: Bone marrow conditioning regimen
     Dosage: UNK
     Dates: start: 202104
  22. MYCOPHENOLATE MOFETIL [Concomitant]
     Active Substance: MYCOPHENOLATE MOFETIL
  23. CYCLOSPORINE [Concomitant]
     Active Substance: CYCLOSPORINE
  24. GEMCITABINE [Concomitant]
     Active Substance: GEMCITABINE
     Indication: B-cell lymphoma
     Dosage: UNK
     Dates: start: 202003
  25. GEMCITABINE [Concomitant]
     Active Substance: GEMCITABINE
     Indication: Progressive multifocal leukoencephalopathy
  26. CISPLATIN [Concomitant]
     Active Substance: CISPLATIN
     Indication: B-cell lymphoma
  27. CISPLATIN [Concomitant]
     Active Substance: CISPLATIN
     Indication: Progressive multifocal leukoencephalopathy

REACTIONS (18)
  - B-cell aplasia [Unknown]
  - Respiratory tract infection bacterial [Unknown]
  - Neurotoxicity [Recovered/Resolved]
  - Clostridium difficile colitis [Unknown]
  - Thrombotic microangiopathy [Unknown]
  - Cytomegalovirus infection reactivation [Unknown]
  - Thrombotic microangiopathy [Unknown]
  - Streptococcal bacteraemia [Unknown]
  - Graft versus host disease [Unknown]
  - B-cell lymphoma [Recovered/Resolved]
  - Cytopenia [Recovering/Resolving]
  - Cytokine release syndrome [Unknown]
  - Mucosal inflammation [Unknown]
  - BK virus infection [Unknown]
  - Urinary tract infection enterococcal [Unknown]
  - Ill-defined disorder [Unknown]
  - Diarrhoea [Unknown]
  - Odynophagia [Not Recovered/Not Resolved]

NARRATIVE: CASE EVENT DATE: 20200101
